FAERS Safety Report 7456363-6 (Version None)
Quarter: 2011Q2

REPORT INFORMATION
  Report Type: 
  Country: None (occurrence: None)
  Receive Date: 20110426
  Receipt Date: 20110411
  Transmission Date: 20111010
  Serious: Yes (Hospitalization)
  Sender: FDA-Public Use
  Company Number: 2011MA003691

PATIENT
  Age: 14 Year
  Sex: Male

DRUGS (2)
  1. BETAMETHASONE DIPROPIONATE [Suspect]
     Indication: PROCTITIS ULCERATIVE
     Dosage: 3.95 MG; OD; RTL
     Route: 054
     Dates: start: 20051226
  2. FOSFOMYCIN [Concomitant]

REACTIONS (12)
  - CANDIDIASIS [None]
  - ALANINE AMINOTRANSFERASE INCREASED [None]
  - ENTEROCOLITIS FUNGAL [None]
  - ALPHA-1 ANTI-TRYPSIN INCREASED [None]
  - HYPOPROTEINAEMIA [None]
  - CULTURE STOOL POSITIVE [None]
  - ENTEROCOLITIS [None]
  - NEUTROPHILIA [None]
  - PROTEIN-LOSING GASTROENTEROPATHY [None]
  - PALLOR [None]
  - BLOOD PRESSURE DECREASED [None]
  - CLOSTRIDIUM TEST POSITIVE [None]
